FAERS Safety Report 9294313 (Version 1)
Quarter: 2013Q2

REPORT INFORMATION
  Report Type: Spontaneous
  Country: US (occurrence: US)
  Receive Date: 20130516
  Receipt Date: 20130516
  Transmission Date: 20140414
  Serious: No
  Sender: FDA-Public Use
  Company Number: US-BANPHARM-20131259

PATIENT
  Sex: Male

DRUGS (5)
  1. IBUPROFEN CAPSULES 200 MG [Suspect]
     Indication: PAIN IN EXTREMITY
     Route: 048
  2. FISH OIL [Concomitant]
  3. GLUCOSAMINE SULPHATE 200 MG [Concomitant]
     Dosage: 1 DF, QD,
  4. OMEPRAZOLE [Concomitant]
  5. ACETAMINOPHEN 500 MG [Concomitant]

REACTIONS (2)
  - Oral discomfort [Recovered/Resolved]
  - Wrong technique in drug usage process [Recovered/Resolved]
